FAERS Safety Report 7259732-2 (Version None)
Quarter: 2011Q1

REPORT INFORMATION
  Report Type: 
  Country: None (occurrence: None)
  Receive Date: 20110130
  Receipt Date: 20100924
  Transmission Date: 20110831
  Serious: No
  Sender: FDA-Public Use
  Company Number: US-ABBOTT-10P-163-0661534-00

PATIENT
  Sex: Female

DRUGS (5)
  1. PROZAC [Concomitant]
     Indication: PRODUCT USED FOR UNKNOWN INDICATION
  2. NADOLOL [Concomitant]
     Indication: HEADACHE
  3. HUMIRA [Suspect]
     Indication: PSORIASIS
  4. HUMIRA [Suspect]
     Indication: PSORIATIC ARTHROPATHY
     Route: 058
     Dates: start: 20080101
  5. IMITREX [Concomitant]
     Indication: MIGRAINE

REACTIONS (8)
  - PYREXIA [None]
  - STAPHYLOCOCCAL INFECTION [None]
  - INJECTION SITE PAIN [None]
  - CHILLS [None]
  - PSORIASIS [None]
  - DRUG ADMINISTRATION ERROR [None]
  - DEVICE MALFUNCTION [None]
  - DIARRHOEA [None]
